FAERS Safety Report 7527702-2 (Version None)
Quarter: 2011Q2

REPORT INFORMATION
  Report Type: 
  Country: None (occurrence: None)
  Receive Date: 20110527
  Receipt Date: 20110512
  Transmission Date: 20111010
  Serious: Yes (Life-Threatening, Hospitalization, Other)
  Sender: FDA-Public Use
  Company Number: AUR-APL-2011-01606

PATIENT
  Age: 55 Year
  Sex: Male

DRUGS (8)
  1. ADALAT [Concomitant]
  2. ASPIRIN [Concomitant]
  3. METFORMIN HCL [Suspect]
     Dosage: 850MG - TID - ORAL
     Route: 048
  4. METOPROLOL TARTRATE [Concomitant]
  5. ALLOPURINOL [Concomitant]
  6. DIPYRIDAMOLE [Concomitant]
  7. IRBESARTAN + HYDROCHLOROTHIAZIDE [Suspect]
     Dosage: 300/12.5MG - QD -ORAL
     Route: 048
  8. LIPITOR [Concomitant]

REACTIONS (5)
  - ACUTE PRERENAL FAILURE [None]
  - GENERAL PHYSICAL HEALTH DETERIORATION [None]
  - DYSPNOEA [None]
  - LACTIC ACIDOSIS [None]
  - DIALYSIS [None]
